FAERS Safety Report 7791284-0 (Version None)
Quarter: 2011Q4

REPORT INFORMATION
  Report Type: 
  Country: None (occurrence: None)
  Receive Date: 20111003
  Receipt Date: 20110928
  Transmission Date: 20120403
  Serious: No
  Sender: FDA-Public Use
  Company Number: US-BIOGENIDEC-2011BI037314

PATIENT
  Age: 33 Year
  Sex: Female

DRUGS (2)
  1. BLADDER MEDICATION (NOS) [Concomitant]
     Indication: PRODUCT USED FOR UNKNOWN INDICATION
  2. TYSABRI [Suspect]
     Indication: MULTIPLE SCLEROSIS
     Route: 042
     Dates: start: 20110901

REACTIONS (6)
  - INFLUENZA LIKE ILLNESS [None]
  - CYSTITIS [None]
  - NERVOUSNESS [None]
  - ERUCTATION [None]
  - GENERAL SYMPTOM [None]
  - VOMITING [None]
